FAERS Safety Report 9985563 (Version 2)
Quarter: 2014Q1

REPORT INFORMATION
  Report Type: Report from Study
  Country: IN (occurrence: IN)
  Receive Date: 20140307
  Receipt Date: 20140314
  Transmission Date: 20141002
  Serious: Yes (Death)
  Sender: FDA-Public Use
  Company Number: IN-BRISTOL-MYERS SQUIBB COMPANY-20382123

PATIENT
  Age: 66 Year
  Sex: Female

DRUGS (1)
  1. BARACLUDE [Suspect]
     Indication: HEPATITIS B
     Route: 048
     Dates: start: 20080823, end: 20140117

REACTIONS (1)
  - Hepatic failure [Fatal]
